FAERS Safety Report 19132603 (Version 1)
Quarter: 2021Q2

REPORT INFORMATION
  Report Type: Spontaneous
  Country: US (occurrence: US)
  Receive Date: 20210413
  Receipt Date: 20210413
  Transmission Date: 20210717
  Serious: Yes (Hospitalization)
  Sender: FDA-Public Use
  Company Number: US-FRESENIUS MEDICAL CARE RENAL THERAPIES GROUP-FMC-2103-000291

PATIENT
  Age: 57 Year
  Sex: Male
  Weight: 75 kg

DRUGS (2)
  1. DELFLEX WITH DEXTROSE 1.5% LOW MAGNESIUM LOW CALCIUM [Suspect]
     Active Substance: CALCIUM CHLORIDE\DEXTROSE\MAGNESIUM CHLORIDE\SODIUM CHLORIDE\SODIUM LACTATE
     Indication: END STAGE RENAL DISEASE
     Dosage: AT 2000 ML FOR 3 EXCHANGES AND ONE NIGHTTIME FILL OF 1500 ML WITH A DWELL TIME OF 8 HOURS, FOR APPRO
     Route: 033
  2. DELFLEX WITH DEXTROSE 2.5% LOW MAGNESIUM LOW CALCIUM [Suspect]
     Active Substance: CALCIUM CHLORIDE\DEXTROSE\MAGNESIUM CHLORIDE\SODIUM CHLORIDE\SODIUM LACTATE
     Indication: END STAGE RENAL DISEASE
     Dosage: AT 2000 ML FOR 3 EXCHANGES AND ONE NIGHTTIME FILL OF 1500 ML WITH A DWELL TIME OF 8 HOURS, FOR APPRO
     Route: 033

REACTIONS (2)
  - Catheter site infection [Unknown]
  - Fungal peritonitis [Unknown]

NARRATIVE: CASE EVENT DATE: 20210210
